FAERS Safety Report 5940756-X (Version None)
Quarter: 2008Q4

REPORT INFORMATION
  Report Type: 
  Country: None (occurrence: None)
  Receive Date: 20081103
  Receipt Date: 20081103
  Transmission Date: 20090506
  Serious: Yes (Hospitalization)
  Sender: FDA-Public Use
  Company Number: None

PATIENT
  Age: 63 Year
  Sex: Male

DRUGS (4)
  1. LISINOPRIL [Suspect]
     Indication: CORONARY ARTERY DISEASE
     Dosage: 20 MG BID PO
     Route: 048
     Dates: start: 20001116, end: 20080513
  2. LISINOPRIL [Suspect]
     Indication: DIABETES MELLITUS
     Dosage: 20 MG BID PO
     Route: 048
     Dates: start: 20001116, end: 20080513
  3. LISINOPRIL [Suspect]
     Indication: HYPERTENSION
     Dosage: 20 MG BID PO
     Route: 048
     Dates: start: 20001116, end: 20080513
  4. TRIMETHOPRIM-SULFAMETHOXAZOLE [Suspect]
     Indication: PROSTATITIS
     Dosage: 800/160 MG BID PO
     Route: 048
     Dates: start: 20080422, end: 20080513

REACTIONS (1)
  - HYPERKALAEMIA [None]
